FAERS Safety Report 5138367-1 (Version None)
Quarter: 2006Q4

REPORT INFORMATION
  Report Type: 
  Country: None (occurrence: None)
  Receive Date: 20061024
  Receipt Date: 20061010
  Transmission Date: 20070319
  Serious: Yes (Hospitalization)
  Sender: FDA-Public Use
  Company Number: CLOF-10342

PATIENT
  Age: 23 Year
  Sex: Male
  Weight: 63.95 kg

DRUGS (4)
  1. CLOFARABINE [Suspect]
     Indication: ACUTE MYELOID LEUKAEMIA
     Dosage: 40 MG QD X 5 IV
     Route: 042
     Dates: start: 20060726, end: 20060730
  2. CLOFARABINE [Suspect]
     Indication: ACUTE MYELOID LEUKAEMIA
     Dosage: 30 MG QD X 5 IV
     Route: 042
     Dates: start: 20060912, end: 20060916
  3. CYTARABINE [Suspect]
     Indication: ACUTE MYELOID LEUKAEMIA
     Dosage: 2790 MG QD X 5 IV
     Route: 042
     Dates: start: 20060726, end: 20060730
  4. CYTARABINE [Suspect]
     Indication: ACUTE MYELOID LEUKAEMIA
     Dosage: 2790 MG QD X 5 IV
     Route: 042
     Dates: start: 20060912, end: 20060916

REACTIONS (11)
  - BACTERIAL SEPSIS [None]
  - CATHETER RELATED INFECTION [None]
  - ERYTHEMA [None]
  - INFLAMMATION [None]
  - OEDEMA PERIPHERAL [None]
  - OSTEOMYELITIS [None]
  - PAIN IN EXTREMITY [None]
  - PANCYTOPENIA [None]
  - SEPSIS [None]
  - SKIN LESION [None]
  - TRANSAMINASES INCREASED [None]
